FAERS Safety Report 14233115 (Version 22)
Quarter: 2019Q1

REPORT INFORMATION
  Report Type: Report from Study
  Country: US (occurrence: US)
  Receive Date: 20171128
  Receipt Date: 20190206
  Transmission Date: 20190417
  Serious: Yes (Death, Hospitalization, Other)
  Sender: FDA-Public Use
  Company Number: US-ACTELION-A-US2017-160813

PATIENT
  Age: 55 Year
  Sex: Female

DRUGS (78)
  1. LANOXIN [Concomitant]
     Active Substance: DIGOXIN
     Dosage: 125 UNK, UNK
     Dates: start: 20170927
  2. ROBITUSSIN (GUAIFENESIN) [Concomitant]
     Active Substance: GUAIFENESIN
     Dosage: 200 MG, UNK
     Dates: start: 20170928
  3. ULTRAM [Concomitant]
     Active Substance: TRAMADOL HYDROCHLORIDE
     Dosage: 50 MG, UNK
     Dates: start: 20170928
  4. BUMEX [Concomitant]
     Active Substance: BUMETANIDE
     Dosage: 2 MG, UNK
     Dates: start: 20171208
  5. DILTIAZEM. [Concomitant]
     Active Substance: DILTIAZEM
     Dosage: 120 MG, UNK
     Dates: start: 20171208
  6. FAMOTIDINE. [Concomitant]
     Active Substance: FAMOTIDINE
     Dosage: UNK
  7. LORAZEPAM. [Concomitant]
     Active Substance: LORAZEPAM
     Dosage: UNK
  8. MYCOPHENOLATE [Concomitant]
     Active Substance: MYCOPHENOLIC ACID
     Dosage: 360 MG, UNK
  9. COUMADIN [Concomitant]
     Active Substance: WARFARIN SODIUM
     Dosage: UNK
     Dates: start: 20171208
  10. CARDIZEM [Concomitant]
     Active Substance: DILTIAZEM HYDROCHLORIDE
  11. TREPROSTINIL. [Concomitant]
     Active Substance: TREPROSTINIL
     Dosage: UNK
     Dates: start: 20180220
  12. XOPENEX [Concomitant]
     Active Substance: LEVALBUTEROL HYDROCHLORIDE
     Dosage: 0.31 MG, UNK
     Route: 055
  13. MYFORTIC [Concomitant]
     Active Substance: MYCOPHENOLATE SODIUM
     Dosage: 360 MG, UNK
     Dates: start: 20170928
  14. DIPHENHYDRAMINE. [Concomitant]
     Active Substance: DIPHENHYDRAMINE
     Dosage: UNK
  15. ERGOCALCIFEROL. [Concomitant]
     Active Substance: ERGOCALCIFEROL
     Dosage: 50000 U, UNK
     Dates: start: 20170927
  16. EPIPEN [Concomitant]
     Active Substance: EPINEPHRINE
     Dosage: 0.3 MG/0.3ML(1:1000)
     Dates: start: 20171208
  17. OMNIPAQUE [Concomitant]
     Active Substance: IOHEXOL
     Dosage: 350 MG, UNK
     Dates: start: 20171208
  18. OXYMETAZOLINE [Concomitant]
     Active Substance: OXYMETAZOLINE
     Dosage: UNK
     Dates: start: 20171208
  19. ELIQUIS [Concomitant]
     Active Substance: APIXABAN
     Dosage: UNK
     Dates: start: 20180420
  20. CHOLECALCIFEROL [Concomitant]
     Active Substance: CHOLECALCIFEROL
     Dosage: UNK
     Dates: start: 20180927
  21. ACETAMINOPHEN. [Concomitant]
     Active Substance: ACETAMINOPHEN
     Dosage: 650 MG, UNK
     Dates: start: 20170927
  22. ALBUTEROL. [Concomitant]
     Active Substance: ALBUTEROL
     Dosage: 90 MCG, 2 PUFF
     Dates: start: 20170927
  23. ULORIC [Concomitant]
     Active Substance: FEBUXOSTAT
     Dosage: 40 MG, UNK
     Dates: start: 20170927
  24. LASIX [Concomitant]
     Active Substance: FUROSEMIDE
     Dosage: 40 MG, UNK
     Dates: start: 20170928
  25. OCEAN SALINE NASAL SPRAY [Concomitant]
     Active Substance: SODIUM CHLORIDE
     Dosage: 0.65 %, UNK
     Dates: start: 20170928
  26. MAGNESIUM OXIDE. [Concomitant]
     Active Substance: MAGNESIUM OXIDE
     Dosage: UNK
  27. SPIRONOLACTONE. [Concomitant]
     Active Substance: SPIRONOLACTONE
     Dosage: UNK
  28. TRAMADOL. [Concomitant]
     Active Substance: TRAMADOL
     Dosage: UNK
     Dates: start: 20170927
  29. LIPITOR [Concomitant]
     Active Substance: ATORVASTATIN CALCIUM
     Dosage: 20 MG, UNK
     Dates: start: 20180420
  30. TADALAFIL. [Concomitant]
     Active Substance: TADALAFIL
     Dosage: 20 MG, BID
     Route: 048
     Dates: start: 20171208
  31. VIBRA [Concomitant]
     Dosage: 100 MG, UNK
     Dates: start: 20170928
  32. MAG-OX [Concomitant]
     Active Substance: MAGNESIUM OXIDE
     Dosage: 400 MG, UNK
     Dates: start: 20170928
  33. MIRALAX [Concomitant]
     Active Substance: POLYETHYLENE GLYCOL 3350
     Dosage: 17 G, UNK
     Dates: start: 20170928
  34. DIGOXIN. [Concomitant]
     Active Substance: DIGOXIN
     Dosage: 125 MCG, UNK
     Dates: start: 20171208
  35. LEVALBUTEROL. [Concomitant]
     Active Substance: LEVALBUTEROL
     Dosage: 1.25 MG/3 ML
  36. LOVENOX [Concomitant]
     Active Substance: ENOXAPARIN SODIUM
     Dosage: UNK
     Dates: start: 20171208
  37. OPSUMIT [Suspect]
     Active Substance: MACITENTAN
     Indication: PULMONARY ARTERIAL HYPERTENSION
     Dosage: 10 MG, QD
     Route: 048
     Dates: start: 20170921, end: 20181106
  38. TUMS [Concomitant]
     Active Substance: CALCIUM CARBONATE
     Dosage: 1000 UNK, UNK
     Dates: start: 20170927
  39. CARDIZEM CD [Concomitant]
     Active Substance: DILTIAZEM HYDROCHLORIDE
     Dosage: 120 UNK, UNK
     Dates: start: 20170927
  40. DRISDOL [Concomitant]
     Active Substance: ERGOCALCIFEROL
     Dosage: 50000 U, UNK
     Dates: start: 20170928
  41. FERROUS SULFATE. [Concomitant]
     Active Substance: FERROUS SULFATE
     Dosage: 325 MG, UNK
     Dates: start: 20170928
  42. POTASSIUM CHLORIDE. [Concomitant]
     Active Substance: POTASSIUM CHLORIDE
     Dosage: 10 MEQ, IN 100 ML IVPB
     Dates: start: 20170928
  43. POTASSIUM CHLORIDE. [Concomitant]
     Active Substance: POTASSIUM CHLORIDE
     Dosage: 20 UNK, UNK
  44. SENOKOT [Concomitant]
     Active Substance: SENNOSIDES
     Dosage: 2 TABLETS
     Dates: start: 20170928
  45. EPIPEN [Concomitant]
     Active Substance: EPINEPHRINE
     Dosage: UNK
  46. IPRATROPIUM [Concomitant]
     Active Substance: IPRATROPIUM
     Dosage: UNK
  47. SLOW MAG [Concomitant]
     Active Substance: MAGNESIUM CHLORIDE
     Dosage: 64 MG, UNK
     Dates: start: 20011208
  48. IMURAN [Concomitant]
     Active Substance: AZATHIOPRINE
     Dosage: 50 MG, UNK
     Dates: start: 201808
  49. TYVASO [Concomitant]
     Active Substance: TREPROSTINIL
     Dosage: 1.74MG/2.9 MG, 0.6 MG/ML
     Route: 055
  50. ATORVASTATIN [Concomitant]
     Active Substance: ATORVASTATIN
     Dosage: 20 MG, UNK
     Dates: start: 20170927
  51. MULTAQ [Concomitant]
     Active Substance: DRONEDARONE
     Dosage: 400 MG, UNK
     Dates: start: 20170927
  52. ZOFRAN [Concomitant]
     Active Substance: ONDANSETRON HYDROCHLORIDE
     Dosage: 4 MG, UNK
     Dates: start: 20170928
  53. PROTONIX [Concomitant]
     Active Substance: PANTOPRAZOLE SODIUM
     Dosage: 40 MG, UNK
     Dates: start: 20170928
  54. POTASSIUM CHLORIDE. [Concomitant]
     Active Substance: POTASSIUM CHLORIDE
     Dosage: 10 MEQ, IN 100 ML IVPB
     Dates: start: 20170928
  55. FEBUXOSTAT. [Concomitant]
     Active Substance: FEBUXOSTAT
     Dosage: 40 MG, UNK
  56. FLUTICASONE. [Concomitant]
     Active Substance: FLUTICASONE
     Dosage: UNK
     Dates: start: 20171208
  57. IRON [Concomitant]
     Active Substance: IRON
     Dosage: UNK, QD
  58. ROXICODONE [Concomitant]
     Active Substance: OXYCODONE HYDROCHLORIDE
     Dosage: 5 MG, UNK
     Dates: start: 20171208
  59. FERROUS FUMARATE [Concomitant]
     Active Substance: FERROUS FUMARATE
     Dosage: UNK
     Dates: start: 20180420
  60. VIBRA-TABS [Concomitant]
     Active Substance: DOXYCYCLINE HYCLATE
  61. TYVASO [Concomitant]
     Active Substance: TREPROSTINIL
     Dosage: 17 UNK, UNK
     Route: 055
     Dates: start: 20170927
  62. KLOR-CON [Concomitant]
     Active Substance: POTASSIUM CHLORIDE
     Dosage: 40 MEQ, UNK
     Dates: start: 20170928
  63. BUMEX [Concomitant]
     Active Substance: BUMETANIDE
     Dosage: 1 MG, UNK
  64. DICLOFENAC SODIUM. [Concomitant]
     Active Substance: DICLOFENAC SODIUM
     Dosage: 1 %, UNK
     Dates: start: 20171208
  65. PHENOL. [Concomitant]
     Active Substance: PHENOL
     Dosage: UNK
  66. POLYETHYLENE GLYCOL [Concomitant]
     Active Substance: POLYETHYLENE GLYCOLS
     Dosage: UNK
  67. RIVAROXABAN [Concomitant]
     Active Substance: RIVAROXABAN
     Dosage: UNK
  68. COLCHICINE. [Concomitant]
     Active Substance: COLCHICINE
     Dosage: 0.6 MG, UNK
     Dates: start: 20171208
  69. SOLU-MEDROL [Concomitant]
     Active Substance: METHYLPREDNISOLONE SODIUM SUCCINATE
     Dosage: UNK
     Dates: start: 20180420
  70. OXYGEN. [Concomitant]
     Active Substance: OXYGEN
  71. TADALAFIL. [Concomitant]
     Active Substance: TADALAFIL
     Dosage: 40 MG, UNK
     Dates: start: 20170928
  72. KLOR-CON [Concomitant]
     Active Substance: POTASSIUM CHLORIDE
     Dosage: 20 MEQ, UNK
     Dates: start: 20170928
  73. ALDACTONE [Concomitant]
     Active Substance: SPIRONOLACTONE
     Dosage: 50 MG, UNK
     Dates: start: 20170928
  74. BUMETANIDE. [Concomitant]
     Active Substance: BUMETANIDE
     Dosage: UNK
  75. DRONEDARONE [Concomitant]
     Active Substance: DRONEDARONE
     Dosage: 400 MG, UNK
     Dates: start: 20171208
  76. PANTOPRAZOLE [Concomitant]
     Active Substance: PANTOPRAZOLE
     Dosage: 40 MG, UNK
  77. CHLORASEPTIC SORE THROAT [Concomitant]
     Active Substance: PHENOL
     Dosage: 1.4 %, UNK
     Dates: start: 20171208
  78. GUAIFENESIN. [Concomitant]
     Active Substance: GUAIFENESIN

REACTIONS (69)
  - Anaemia of chronic disease [Unknown]
  - Blood sodium decreased [Unknown]
  - Oesophageal dilatation [Unknown]
  - Orthopnoea [Unknown]
  - Pulmonary embolism [Recovered/Resolved]
  - Gastrointestinal haemorrhage [Recovered/Resolved]
  - Haematochezia [Recovered/Resolved]
  - Vomiting [Recovered/Resolved]
  - Dehydration [Recovered/Resolved]
  - Blood uric acid increased [Recovered/Resolved]
  - Viral infection [Unknown]
  - Fatigue [Recovering/Resolving]
  - Headache [Not Recovered/Not Resolved]
  - Bronchitis [Recovered/Resolved with Sequelae]
  - Chest discomfort [Unknown]
  - Hypoxia [Recovered/Resolved with Sequelae]
  - Heart rate increased [Unknown]
  - Dizziness [Not Recovered/Not Resolved]
  - Impaired gastric emptying [Recovered/Resolved]
  - Wheezing [Unknown]
  - Weight increased [Recovered/Resolved]
  - Abdominal pain [Not Recovered/Not Resolved]
  - White blood cell count increased [Not Recovered/Not Resolved]
  - Leukocytosis [Recovered/Resolved]
  - Aspartate aminotransferase increased [Recovered/Resolved]
  - Blood magnesium decreased [Unknown]
  - Brain natriuretic peptide increased [Unknown]
  - Product dose omission [Unknown]
  - Anaemia [Recovered/Resolved]
  - Iron deficiency anaemia [Unknown]
  - Acute respiratory failure [Recovered/Resolved]
  - Oesophageal motility disorder [Recovered/Resolved]
  - Oesophageal obstruction [Unknown]
  - Pneumonitis [Unknown]
  - Oropharyngeal pain [Recovered/Resolved]
  - Ecchymosis [Unknown]
  - Respiratory failure [Fatal]
  - Pulmonary arterial hypertension [Fatal]
  - Regurgitation [Recovering/Resolving]
  - Platelet count increased [Not Recovered/Not Resolved]
  - Pneumonia [Unknown]
  - Constipation [Recovered/Resolved]
  - Blood potassium decreased [Unknown]
  - Blood lactic acid increased [Unknown]
  - Gastrooesophageal reflux disease [Unknown]
  - Respiratory distress [Unknown]
  - Blood creatinine increased [Unknown]
  - Haemoglobin decreased [Unknown]
  - Transfusion [Unknown]
  - Microcytic anaemia [Unknown]
  - Dyspnoea [Recovered/Resolved]
  - Chest pain [Recovered/Resolved]
  - Nausea [Recovered/Resolved]
  - Fluid overload [Recovered/Resolved]
  - Electrocardiogram QT prolonged [Unknown]
  - Sepsis [Recovered/Resolved]
  - Tachypnoea [Recovered/Resolved]
  - Tachycardia [Unknown]
  - Chronic obstructive pulmonary disease [Unknown]
  - Interstitial lung disease [Unknown]
  - Productive cough [Unknown]
  - Condition aggravated [Unknown]
  - Hospitalisation [Unknown]
  - Dry skin [Unknown]
  - Asthma [Unknown]
  - Thrombocytosis [Unknown]
  - Atrial fibrillation [Unknown]
  - Oxygen saturation decreased [Recovered/Resolved]
  - Cough [Recovered/Resolved]

NARRATIVE: CASE EVENT DATE: 20170927
